FAERS Safety Report 7403953-2 (Version None)
Quarter: 2011Q2

REPORT INFORMATION
  Report Type: 
  Country: None (occurrence: None)
  Receive Date: 20110408
  Receipt Date: 20110330
  Transmission Date: 20111010
  Serious: Yes (Hospitalization, Other)
  Sender: FDA-Public Use
  Company Number: ES-ASTRAZENECA-2011SE18574

PATIENT
  Age: 58 Year
  Sex: Male

DRUGS (6)
  1. ALDACTONE [Interacting]
     Indication: CARDIAC FAILURE
     Route: 048
     Dates: start: 20080101
  2. DURAGESIC-100 [Concomitant]
     Indication: PAIN
     Dosage: 12 UG/H TRANSDERMIC PATCHS, 5 PATCHS, 1 DF TWICE A WEEK
     Dates: start: 20060101
  3. OMEPRAZOLE [Concomitant]
     Indication: GASTRITIS PROPHYLAXIS
     Dosage: EVERY DAY
  4. ATACAND [Suspect]
     Indication: CARDIAC FAILURE
     Route: 048
     Dates: start: 20081015, end: 20081208
  5. HIDROSALURETIL [Interacting]
     Indication: CARDIAC FAILURE
     Route: 048
     Dates: start: 20080101, end: 20081208
  6. MINITRAN [Concomitant]
     Indication: CARDIAC FAILURE
     Dosage: 5, 7 PATCH
     Dates: start: 20071101

REACTIONS (3)
  - RENAL FAILURE ACUTE [None]
  - BLOOD PRESSURE DIASTOLIC DECREASED [None]
  - DRUG INTERACTION [None]
